FAERS Safety Report 20361909 (Version 1)
Quarter: 2022Q1

REPORT INFORMATION
  Report Type: Spontaneous
  Country: NL (occurrence: NL)
  Receive Date: 20220121
  Receipt Date: 20220121
  Transmission Date: 20220424
  Serious: Yes (Other)
  Sender: FDA-Public Use
  Company Number: None

PATIENT
  Sex: Female
  Weight: 115 kg

DRUGS (22)
  1. PREDNISOLONE [Suspect]
     Active Substance: PREDNISOLONE
     Indication: Pneumonia
     Dosage: 40 MILLIGRAM DAILY; 1X PER DAY 1 PIECE,PREDNISOLON CAPSULE 40MG / BRAND NAME NOT SPECIFIED
     Route: 065
     Dates: start: 20211213, end: 20211214
  2. HYDROCHLOROTHIAZIDE [Concomitant]
     Active Substance: HYDROCHLOROTHIAZIDE
     Dosage: 25 MILLIGRAM DAILY; 1 X PER DAY 1 PIECE,HYDROCHLOROTHIAZIDE TABLET 25MG / BRAND NAME NOT SPECIFIED,T
  3. IPRATROPIUM [Concomitant]
     Active Substance: IPRATROPIUM
     Dosage: 60 MICROGRAM DAILY; 1 DOSE 3 TIMES A DAY,IPRATROPIUM AEROSOL 20UG/DO / BRAND NAME NOT SPECIFIED,THER
  4. ACETAMINOPHEN [Concomitant]
     Active Substance: ACETAMINOPHEN
     Dosage: IF NECESSARY 4 X A DAY 2 PIECE,PARACETAMOL TABLET 500MG / BRAND NAME NOT SPECIFIED,THERAPY START DAT
  5. BETAHISTINE [Concomitant]
     Active Substance: BETAHISTINE
     Dosage: 48 MILLIGRAM DAILY; 3 X A DAY 1 PIECE,BETAHISTINE TABLET 16MG / BRAND NAME NOT SPECIFIED,THERAPY STA
  6. ESOMEPRAZOL / NEXIUM [Concomitant]
     Dosage: 40 MILLIGRAM DAILY; 1 X PER DAY 1 PIECE, 40 MG,ESOMEPRAZOL TABLET MSR 40MG / NEXIUM TABLET MSR 40MG,
  7. METFORMINE  / METFORMINE HCL [Concomitant]
     Dosage: 1000 MILLIGRAM DAILY; 2 X A DAY 1 PIECE,METFORMIN TABLET 500MG / METFORMIN HCL TEVA TABLET 500MG,THE
  8. ALBUTEROL [Concomitant]
     Active Substance: ALBUTEROL
     Dosage: 4 DOSAGE FORMS DAILY; 1 DOSE 4 TIMES A DAY AS NEEDED,SALBUTAMOL INHALATION POWDER 100UG/DO / BRAND N
  9. PAROXETINE [Concomitant]
     Active Substance: PAROXETINE
     Dosage: 30 MILLIGRAM DAILY; 1 X PER DAY 1.5 PIECE,PAROXETINE TABLET 20MG / BRAND NAME NOT SPECIFIED,UNIT DOS
  10. DEXAMETHASONE [Concomitant]
     Active Substance: DEXAMETHASONE
     Dosage: 4 MILLIGRAM DAILY; 1 X PER DAY 1 PIECE,DEXAMETHASON TABLET 4MG / BRAND NAME NOT SPECIFIED,THERAPY ST
  11. NICOTINE  (NICOTINEL/NICOPATCH) [Concomitant]
     Dosage: 1 DOSAGE FORMS DAILY; 1 X PER DAY 1 PIECE,NICOTINE PLASTER 21MG/24HOUR (NICOTINEL/NICOPATCH) / BRAND
  12. IRBESARTAN [Concomitant]
     Active Substance: IRBESARTAN
     Dosage: 300 MILLIGRAM DAILY; 1 X PER DAY 2 PIECE IRBESARTAN TABLET 150MG / BRAND NAME NOT SPECIFIED,THERAPY
  13. DEXTRAN 70/ DEXTRAN 70 [Concomitant]
     Dosage: 3 GTT DAILY; 3 X A DAY 1 DROP,DEXTRAN 70 - NON-CURRENT DRUG / DEXTRAN 70 - NON-CURRENT DRUG,THERAPY
  14. BISOPROLOL [Concomitant]
     Active Substance: BISOPROLOL
     Dosage: 5 MILLIGRAM DAILY; 1 X PER DAY 1 PIECE,BISOPROLOL TABLET 5MG / BRAND NAME NOT SPECIFIED,THERAPY STAR
  15. BECLOMETASON/FORMOTEROL [Concomitant]
     Dosage: 4 DOSAGE FORMS DAILY; 2 X 2 DOSE PER DAY,,BECLOMETASON/FORMOTEROL AEROSOL 100/6UG/DO / BRAND NAME NO
  16. APIXABAN [Concomitant]
     Active Substance: APIXABAN
     Dosage: 10 MILLIGRAM DAILY; 2 X PER DAY 1 PIECE,APIXABAN TABLET 5MG / BRAND NAME NOT SPECIFIED,THERAPY START
  17. FLUTICASONE [Concomitant]
     Active Substance: FLUTICASONE
     Dosage: 2 DOSAGE FORMS DAILY; 1 X PER DAY 1 DOSE IN BOTH NOSTRILS,FLUTICASON FUROATE NOSE SPRAY 27.5UG/DO /
  18. DIAZEPAM [Concomitant]
     Active Substance: DIAZEPAM
     Dosage: IF NECESSARY 2 X PER DAY 0.5 PIECE,DIAZEPAM TABLET  5MG / BRAND NAME NOT SPECIFIED,THERAPY START DAT
  19. DEXAMETHASONE [Concomitant]
     Active Substance: DEXAMETHASONE
     Dosage: 6 MILLIGRAM DAILY; 1 X PER DAY 4 PIECE,DEXAMETHASON TABLET 1,5MG / BRAND NAME NOT SPECIFIED,THERAPY
  20. INSULINE ASPART  / NOVORAPID FLEXPEN [Concomitant]
     Dosage: INJECT IT 4 X A DAY ACCORDING TO SCHEDULE,INSULIN ASPART INJVLST 100E/ML / NOVORAPID FLEXPEN INJVLST
  21. GLICLAZIDE [Concomitant]
     Active Substance: GLICLAZIDE
     Dosage: 120 MILLIGRAM DAILY; 1 X PER DAY 4 PIECE,,GLLICLAZIDE TABLET MGA 30MG / BRAND NAME NOT SPECIFIED,THE
  22. TRIMETHOPRIM [Concomitant]
     Active Substance: TRIMETHOPRIM
     Dosage: 100 MILLIGRAM DAILY; 1 X PER DAY 1 PIECE,TRIMETHOPRIM TABLET 100MG / BRAND NAME NOT SPECIFIED,THERAP

REACTIONS (1)
  - Delirium [Recovered/Resolved]
